FAERS Safety Report 13260903 (Version 1)
Quarter: 2017Q1

REPORT INFORMATION
  Report Type: Spontaneous
  Country: SG (occurrence: SG)
  Receive Date: 20170222
  Receipt Date: 20170222
  Transmission Date: 20170428
  Serious: Yes (Death)
  Sender: FDA-Public Use
  Company Number: SG-INCYTE CORPORATION-2017IN000992

PATIENT
  Age: 37 Year
  Sex: Male

DRUGS (2)
  1. EVEROLIMUS [Suspect]
     Active Substance: EVEROLIMUS
     Indication: T-CELL LYMPHOMA
     Dosage: UNKNOWN
     Route: 065
  2. JAKAVI [Suspect]
     Active Substance: RUXOLITINIB
     Indication: T-CELL LYMPHOMA
     Route: 065

REACTIONS (3)
  - Malignant neoplasm progression [Fatal]
  - T-cell lymphoma [Fatal]
  - Off label use [Unknown]
